FAERS Safety Report 13449428 (Version 1)
Quarter: 2017Q2

REPORT INFORMATION
  Report Type: Spontaneous
  Country: TR (occurrence: TR)
  Receive Date: 20170417
  Receipt Date: 20170417
  Transmission Date: 20170830
  Serious: Yes (Other)
  Sender: FDA-Public Use
  Company Number: ALCN2017TR002715

PATIENT
  Sex: Female

DRUGS (2)
  1. AZARGA [Suspect]
     Active Substance: BRINZOLAMIDE\TIMOLOL MALEATE
     Indication: POSTOPERATIVE CARE
     Route: 047
  2. ALPHAGAN P [Concomitant]
     Active Substance: BRIMONIDINE TARTRATE
     Indication: POSTOPERATIVE CARE
     Route: 065

REACTIONS (2)
  - Retinal vascular disorder [Unknown]
  - Glaucoma [Unknown]
